FAERS Safety Report 19144920 (Version 1)
Quarter: 2021Q2

REPORT INFORMATION
  Report Type: Spontaneous
  Country: PL (occurrence: PL)
  Receive Date: 20210416
  Receipt Date: 20210416
  Transmission Date: 20210717
  Serious: Yes (Hospitalization, Other)
  Sender: FDA-Public Use
  Company Number: NVSC2021PL080618

PATIENT
  Age: 62 Year
  Sex: Male

DRUGS (5)
  1. NILOTINIB [Suspect]
     Active Substance: NILOTINIB
     Dosage: 800 MG, QD
     Route: 065
     Dates: start: 201905
  2. NILOTINIB [Suspect]
     Active Substance: NILOTINIB
     Dosage: 600 MG, QD
     Route: 065
     Dates: start: 201904
  3. NILOTINIB [Suspect]
     Active Substance: NILOTINIB
     Dosage: 400 MG, QD
     Route: 065
     Dates: start: 20181126
  4. NILOTINIB [Suspect]
     Active Substance: NILOTINIB
     Indication: CHRONIC MYELOID LEUKAEMIA
     Dosage: 800 MG, QD (2 X 400 MG/DAILY)
     Route: 065
     Dates: start: 20180924
  5. NILOTINIB [Suspect]
     Active Substance: NILOTINIB
     Dosage: 600 MG, QD
     Route: 065
     Dates: start: 201906

REACTIONS (3)
  - Renal function test abnormal [Unknown]
  - Chronic kidney disease [Unknown]
  - Thrombocytopenia [Unknown]

NARRATIVE: CASE EVENT DATE: 201906
